FAERS Safety Report 17277655 (Version 1)
Quarter: 2020Q1

REPORT INFORMATION
  Report Type: Spontaneous
  Country: EG (occurrence: EG)
  Receive Date: 20200116
  Receipt Date: 20200116
  Transmission Date: 20200409
  Serious: Yes (Other)
  Sender: FDA-Public Use
  Company Number: EG-ROCHE-2513866

PATIENT
  Age: 27 Year

DRUGS (2)
  1. RIBAVIRIN. [Suspect]
     Active Substance: RIBAVIRIN
     Indication: HEPATITIS C
     Route: 065
  2. SOVALDI [Suspect]
     Active Substance: SOFOSBUVIR
     Indication: HEPATITIS C
     Route: 065

REACTIONS (9)
  - Dermatitis [Unknown]
  - Hepatitis C [Unknown]
  - Oedema [Unknown]
  - Peripheral swelling [Unknown]
  - Blood bilirubin increased [Unknown]
  - Fatigue [Unknown]
  - Splenomegaly [Unknown]
  - Fibrosis [Unknown]
  - Skin laceration [Unknown]
